FAERS Safety Report 9027052 (Version 2)
Quarter: 2013Q1

REPORT INFORMATION
  Report Type: Spontaneous
  Country: US (occurrence: US)
  Receive Date: 20130123
  Receipt Date: 20130222
  Transmission Date: 20140127
  Serious: Yes (Hospitalization)
  Sender: FDA-Public Use
  Company Number: US-B.I. PHARMACEUTICALS,INC./RIDGEFIELD-2013-BI-01019BP

PATIENT
  Age: 80 None
  Sex: Male
  Weight: 63.96 kg

DRUGS (14)
  1. PRADAXA [Suspect]
     Indication: ATRIAL FLUTTER
     Dosage: 300 MG
     Route: 048
     Dates: start: 20120712, end: 201212
  2. PRADAXA [Suspect]
     Indication: ATRIAL FIBRILLATION
  3. TOPROL XL [Concomitant]
     Route: 048
  4. CRESTOR [Concomitant]
     Indication: BLOOD CHOLESTEROL INCREASED
     Dosage: 20 MG
     Route: 048
  5. ARANESP [Concomitant]
     Indication: ANAEMIA
     Route: 030
  6. METFORMIN [Concomitant]
     Indication: DIABETES MELLITUS
     Dosage: 1000 MG
     Route: 048
  7. LISINOPRIL [Concomitant]
     Dosage: 2.5 MG
     Route: 048
  8. LASIX [Concomitant]
     Dosage: 40 MG
     Route: 048
  9. VITAMIN B12 [Concomitant]
     Dosage: 1000 U
     Route: 030
  10. ASA [Concomitant]
     Dosage: 81 MG
     Route: 048
  11. PROTONIX [Concomitant]
     Dosage: 40 MG
     Route: 048
  12. SYNTHROID [Concomitant]
     Indication: HYPOTHYROIDISM
     Dosage: 25 MCG
     Route: 048
  13. NITROGLYCERIN [Concomitant]
     Indication: CHEST PAIN
  14. LOPRESSOR [Concomitant]
     Dosage: 50 MG

REACTIONS (7)
  - Epistaxis [Recovered/Resolved]
  - Gastrointestinal haemorrhage [Recovered/Resolved]
  - Melaena [Recovered/Resolved]
  - Haemoglobin decreased [Recovered/Resolved]
  - Chest pain [Recovered/Resolved]
  - Ulcer [Recovered/Resolved]
  - Depressed level of consciousness [Recovered/Resolved]
